FAERS Safety Report 8413970-1 (Version None)
Quarter: 2012Q2

REPORT INFORMATION
  Report Type: 
  Country: None (occurrence: None)
  Receive Date: 20120605
  Receipt Date: 20120601
  Transmission Date: 20120825
  Serious: Yes (Death)
  Sender: FDA-Public Use
  Company Number: RU-BRISTOL-MYERS SQUIBB COMPANY-16655128

PATIENT

DRUGS (1)
  1. DASATINIB [Suspect]

REACTIONS (1)
  - DEATH [None]
